FAERS Safety Report 17632395 (Version 1)
Quarter: 2020Q2

REPORT INFORMATION
  Report Type: Spontaneous
  Country: FR (occurrence: FR)
  Receive Date: 20200406
  Receipt Date: 20200406
  Transmission Date: 20200713
  Serious: Yes (Hospitalization)
  Sender: FDA-Public Use
  Company Number: FR-ALLERGAN-2014269US

PATIENT
  Sex: Female

DRUGS (4)
  1. PARACETAMOL [Suspect]
     Active Substance: ACETAMINOPHEN
     Indication: INTENTIONAL OVERDOSE
     Dosage: 15 G
     Route: 048
     Dates: start: 20200106, end: 20200106
  2. LAROXYL [Suspect]
     Active Substance: AMITRIPTYLINE HYDROCHLORIDE
     Indication: INTENTIONAL OVERDOSE
     Dosage: 1000 MG
     Route: 048
     Dates: start: 20200106, end: 20200106
  3. NORDAZ [Suspect]
     Active Substance: NORDAZEPAM
     Indication: INTENTIONAL OVERDOSE
     Dosage: NPOVERDOSE
     Route: 048
     Dates: start: 20200106, end: 20200106
  4. ESCITALOPRAM OXALATE - BP [Suspect]
     Active Substance: ESCITALOPRAM OXALATE
     Indication: INTENTIONAL OVERDOSE
     Dosage: NP OVERDOSE: UNKNOWN
     Route: 048
     Dates: start: 20200106, end: 20200106

REACTIONS (4)
  - Poisoning deliberate [Recovered/Resolved]
  - Confusional state [Recovered/Resolved]
  - Electrocardiogram QT prolonged [Recovered/Resolved]
  - Prothrombin time shortened [Recovered/Resolved]

NARRATIVE: CASE EVENT DATE: 20200106
